FAERS Safety Report 6952944-4 (Version None)
Quarter: 2010Q3

REPORT INFORMATION
  Report Type: 
  Country: None (occurrence: None)
  Receive Date: 20100829
  Receipt Date: 20100518
  Transmission Date: 20110219
  Serious: No
  Sender: FDA-Public Use
  Company Number: US-ABBOTT-10P-163-0646605-00

PATIENT
  Sex: Male
  Weight: 113.5 kg

DRUGS (18)
  1. NIASPAN [Suspect]
     Indication: BLOOD CHOLESTEROL INCREASED
     Route: 048
     Dates: start: 20100516
  2. LANTUS [Concomitant]
     Indication: DIABETES MELLITUS
     Dosage: 66U Q AM, 77U QHS
     Route: 058
  3. NOVOLOG [Concomitant]
     Indication: DIABETES MELLITUS
     Dosage: WITH EACH MEAL
     Route: 058
  4. GABAPENTIN [Concomitant]
     Indication: PRODUCT USED FOR UNKNOWN INDICATION
     Dosage: 300MG IN AM, 600MG QHS
  5. RANITIDINE [Concomitant]
     Indication: GASTROOESOPHAGEAL REFLUX DISEASE
     Route: 048
  6. METOLAZONE [Concomitant]
     Indication: HYPERTENSION
     Route: 048
  7. FENOFIBRATE [Concomitant]
     Indication: BLOOD CHOLESTEROL INCREASED
     Route: 048
  8. CARVEDILOL [Concomitant]
     Indication: HYPERTENSION
     Route: 048
  9. EPLERENONE [Concomitant]
     Indication: HYPERTENSION
     Route: 048
  10. PLAVIX [Concomitant]
     Indication: CARDIAC DISORDER
     Route: 048
  11. DIGOXIN [Concomitant]
     Indication: PRODUCT USED FOR UNKNOWN INDICATION
     Route: 048
  12. LEVOTHYROXINE [Concomitant]
     Indication: PRODUCT USED FOR UNKNOWN INDICATION
     Route: 048
  13. FUROSEMIDE [Concomitant]
     Indication: HYPERTENSION
     Route: 048
  14. SIMVASTATIN [Concomitant]
     Indication: BLOOD CHOLESTEROL INCREASED
     Route: 048
  15. MICARDIS HCT [Concomitant]
     Indication: HYPERTENSION
     Dosage: 80/25MG 1 IN 1 D
     Route: 048
  16. NITROGLYCERIN [Concomitant]
     Indication: PRODUCT USED FOR UNKNOWN INDICATION
     Dosage: 0.1MG/HOUR ON IN AM, OFF QHS
     Route: 062
  17. ATIVAN [Concomitant]
     Indication: PRODUCT USED FOR UNKNOWN INDICATION
  18. ASPIRIN [Concomitant]
     Indication: CARDIAC DISORDER
     Route: 048

REACTIONS (1)
  - BLOOD GLUCOSE INCREASED [None]
